FAERS Safety Report 8252930-0 (Version None)
Quarter: 2012Q2

REPORT INFORMATION
  Report Type: 
  Country: None (occurrence: None)
  Receive Date: 20120402
  Receipt Date: 20120215
  Transmission Date: 20120825
  Serious: No
  Sender: FDA-Public Use
  Company Number: US-ABBOTT-12P-163-0905287-00

PATIENT
  Sex: Male
  Weight: 102.6 kg

DRUGS (4)
  1. ANDROGEL [Suspect]
     Indication: BLOOD TESTOSTERONE DECREASED
     Dates: start: 20111212, end: 20120101
  2. FLONASE [Concomitant]
     Indication: SEASONAL ALLERGY
  3. ALLEGRA [Concomitant]
     Indication: SEASONAL ALLERGY
  4. BENICAR [Concomitant]
     Indication: HYPERTENSION

REACTIONS (3)
  - JOINT SWELLING [None]
  - BLOOD PRESSURE INCREASED [None]
  - HEADACHE [None]
